FAERS Safety Report 7316889-2 (Version None)
Quarter: 2011Q1

REPORT INFORMATION
  Report Type: 
  Country: None (occurrence: None)
  Receive Date: 20110226
  Receipt Date: 20100830
  Transmission Date: 20110831
  Serious: No
  Sender: FDA-Public Use
  Company Number: US-ALLERGAN-1011240US

PATIENT
  Age: 37 Year
  Sex: Female

DRUGS (7)
  1. BOTOX COSMETIC [Suspect]
     Dosage: 2.5 UNITS, SINGLE
     Route: 030
     Dates: start: 20071012, end: 20071012
  2. BOTOX COSMETIC [Suspect]
     Dosage: 37.5 UNITS, SINGLE
     Route: 030
     Dates: start: 20080321, end: 20080321
  3. BOTOX COSMETIC [Suspect]
     Dosage: 17.5 UNITS, SINGLE
     Route: 030
     Dates: start: 20071003, end: 20071003
  4. BOTOX COSMETIC [Suspect]
  5. BOTOX COSMETIC [Suspect]
  6. BOTOX COSMETIC [Suspect]
     Indication: SKIN WRINKLING
     Dosage: 37.5 UNITS, SINGLE
     Route: 030
     Dates: start: 20070912, end: 20070912
  7. BOTOX COSMETIC [Suspect]

REACTIONS (3)
  - BURNING SENSATION [None]
  - EYELID PTOSIS [None]
  - FACIAL PARESIS [None]
